FAERS Safety Report 9368354 (Version 3)
Quarter: 2014Q2

REPORT INFORMATION
  Report Type: Spontaneous
  Country: US (occurrence: US)
  Receive Date: 20130625
  Receipt Date: 20140408
  Transmission Date: 20141212
  Serious: No
  Sender: FDA-Public Use
  Company Number: US-ASTELLAS-2013US004383

PATIENT
  Age: 59 Year
  Sex: Female
  Weight: 75 kg

DRUGS (6)
  1. VESICARE [Suspect]
     Indication: URGE INCONTINENCE
     Dosage: 5 MG, UNKNOWN/D
     Route: 048
     Dates: end: 201111
  2. MYRBETRIQ [Suspect]
     Indication: URGE INCONTINENCE
     Dosage: 25 MG, UID/QD
     Route: 048
  3. MYRBETRIQ [Suspect]
  4. ZETIA [Concomitant]
     Indication: BLOOD CHOLESTEROL
     Dosage: 10 MG, UID/QD
     Route: 048
  5. DEXILANT [Concomitant]
     Indication: GASTROOESOPHAGEAL REFLUX DISEASE
     Dosage: 50 MG, UID/QD
     Route: 048
  6. VITAMAN [Concomitant]
     Indication: PRODUCT USED FOR UNKNOWN INDICATION
     Dosage: UNK
     Route: 065

REACTIONS (2)
  - Alopecia [Not Recovered/Not Resolved]
  - Vision blurred [Unknown]
